FAERS Safety Report 5656004-4 (Version None)
Quarter: 2008Q1

REPORT INFORMATION
  Report Type: 
  Country: None (occurrence: None)
  Receive Date: 20080307
  Receipt Date: 20080228
  Transmission Date: 20080703
  Serious: Yes (Other)
  Sender: FDA-Public Use
  Company Number: US-PFIZER INC-2008018481

PATIENT
  Sex: Female
  Weight: 72.727 kg

DRUGS (3)
  1. CELEBREX [Suspect]
     Indication: ARTHRALGIA
  2. CELEBREX [Suspect]
     Indication: JOINT RANGE OF MOTION DECREASED
  3. LEVOXINE [Concomitant]

REACTIONS (1)
  - ANGINA PECTORIS [None]
